FAERS Safety Report 13046593 (Version 2)
Quarter: 2017Q1

REPORT INFORMATION
  Report Type: Spontaneous
  Country: PE (occurrence: PE)
  Receive Date: 20161220
  Receipt Date: 20170127
  Transmission Date: 20170428
  Serious: Yes (Other)
  Sender: FDA-Public Use
  Company Number: PE-PFIZER INC-2016412927

PATIENT
  Age: 73 Year
  Sex: Female

DRUGS (2)
  1. ACCURETIC [Suspect]
     Active Substance: HYDROCHLOROTHIAZIDE\QUINAPRIL HYDROCHLORIDE
     Dosage: 2 DF, DAILY
  2. CARVEDIL [Concomitant]
     Active Substance: CARVEDILOL
     Dosage: 12.5 MG 1/2 TABLET IN THE MORNING AND 1/2 TABLET AT NIGHT

REACTIONS (2)
  - Intracranial aneurysm [Unknown]
  - Asthenia [Unknown]
